FAERS Safety Report 9013590 (Version 1)
Quarter: 2013Q1

REPORT INFORMATION
  Report Type: Spontaneous
  Country: FR (occurrence: FR)
  Receive Date: 20130115
  Receipt Date: 20130115
  Transmission Date: 20140127
  Serious: Yes (Hospitalization)
  Sender: FDA-Public Use
  Company Number: PHHY2013FR003048

PATIENT
  Age: 49 Year
  Sex: Female

DRUGS (4)
  1. ZOMETA [Suspect]
     Indication: METASTASES TO BONE
     Dosage: 4 MG, EVERY 4 WEEKS
     Route: 042
     Dates: end: 201205
  2. AVASTIN [Concomitant]
     Indication: BREAST CANCER METASTATIC
     Dosage: 1200 MG, BIW
     Dates: start: 201107, end: 20111027
  3. PACLITAXEL [Concomitant]
     Indication: BREAST CANCER METASTATIC
     Dosage: 180 MG, UNK
     Dates: start: 20110328, end: 20111027
  4. DEXAMETHASONE [Concomitant]
     Indication: BREAST CANCER METASTATIC
     Dosage: 20 MG, UNK
     Dates: start: 20110328, end: 20111027

REACTIONS (4)
  - Osteonecrosis [Recovered/Resolved with Sequelae]
  - Tooth avulsion [Unknown]
  - Gingival infection [Recovered/Resolved with Sequelae]
  - Pain [Recovered/Resolved with Sequelae]
